FAERS Safety Report 24369435 (Version 1)
Quarter: 2024Q3

REPORT INFORMATION
  Report Type: Report from Study
  Country: US (occurrence: US)
  Receive Date: 20240927
  Receipt Date: 20240927
  Transmission Date: 20241017
  Serious: No
  Sender: ROCHE
  Company Number: US-ROCHE-2831048

PATIENT
  Age: 18 Year
  Sex: Male

DRUGS (3)
  1. LUCENTIS [Suspect]
     Active Substance: RANIBIZUMAB
     Indication: Corneal neovascularisation
     Dosage: INJECT 0.5MG VIA INTRAVITREAL ADMINISTRATION INTO EACH EYE EVERY 4 WEEK(S) AS DIRECTED
     Route: 050
     Dates: end: 20240515
  2. LUCENTIS [Suspect]
     Active Substance: RANIBIZUMAB
     Indication: Ulcerative keratitis
     Route: 050
  3. LUCENTIS [Suspect]
     Active Substance: RANIBIZUMAB
     Indication: Keratitis interstitial
     Route: 050

REACTIONS (3)
  - Off label use [Unknown]
  - No adverse event [Unknown]
  - Product storage error [Unknown]
